FAERS Safety Report 5230475-X (Version None)
Quarter: 2007Q1

REPORT INFORMATION
  Report Type: 
  Country: None (occurrence: None)
  Receive Date: 20070202
  Receipt Date: 20070117
  Transmission Date: 20070707
  Serious: Yes (Hospitalization)
  Sender: FDA-Public Use
  Company Number: 2007AD000002

PATIENT
  Sex: 0

DRUGS (3)
  1. KEFLEX [Suspect]
     Dosage: TRPL; SEE IMAGE
     Route: 064
     Dates: start: 20060819, end: 20060901
  2. KEFLEX [Suspect]
     Dosage: TRPL; SEE IMAGE
     Route: 064
     Dates: start: 20061001, end: 20061101
  3. KEFLEX [Suspect]
     Dosage: TRPL; SEE IMAGE
     Route: 064
     Dates: start: 20061201

REACTIONS (5)
  - CAESAREAN SECTION [None]
  - DRUG EXPOSURE DURING PREGNANCY [None]
  - FOETAL MOVEMENTS DECREASED [None]
  - GASTRIC DISORDER [None]
  - INTESTINAL OBSTRUCTION [None]
